FAERS Safety Report 5197087-8 (Version None)
Quarter: 2007Q1

REPORT INFORMATION
  Report Type: 
  Country: None (occurrence: None)
  Receive Date: 20070103
  Receipt Date: 20061220
  Transmission Date: 20070707
  Serious: Yes (Other)
  Sender: FDA-Public Use
  Company Number: CA-ELI_LILLY_AND_COMPANY-CA200612003947

PATIENT
  Sex: Male

DRUGS (2)
  1. CIALIS [Suspect]
  2. COCAINE [Concomitant]

REACTIONS (2)
  - CARDIAC DISORDER [None]
  - INTENTIONAL DRUG MISUSE [None]
